FAERS Safety Report 6151632-4 (Version None)
Quarter: 2009Q2

REPORT INFORMATION
  Report Type: 
  Country: None (occurrence: None)
  Receive Date: 20090410
  Receipt Date: 20090331
  Transmission Date: 20091009
  Serious: Yes (Other)
  Sender: FDA-Public Use
  Company Number: US-PFIZER INC-2009191473

PATIENT
  Sex: Female

DRUGS (3)
  1. PROVERA [Suspect]
     Dosage: 2.5 -10 MG, UNK
  2. PREMARIN [Suspect]
  3. PREMPRO [Suspect]

REACTIONS (1)
  - BREAST CANCER [None]
